FAERS Safety Report 8561072-6 (Version None)
Quarter: 2012Q3

REPORT INFORMATION
  Report Type: 
  Country: None (occurrence: None)
  Receive Date: 20120802
  Receipt Date: 20120216
  Transmission Date: 20120928
  Serious: No
  Sender: FDA-Public Use
  Company Number: US-BRISTOL-MYERS SQUIBB COMPANY-16402935

PATIENT
  Age: 20 Year
  Sex: Male
  Weight: 95 kg

DRUGS (1)
  1. REYATAZ [Suspect]
     Indication: EXPOSURE TO COMMUNICABLE DISEASE

REACTIONS (1)
  - INCORRECT STORAGE OF DRUG [None]
